FAERS Safety Report 8167404-5 (Version None)
Quarter: 2012Q1

REPORT INFORMATION
  Report Type: 
  Country: None (occurrence: None)
  Receive Date: 20120227
  Receipt Date: 20120220
  Transmission Date: 20120608
  Serious: Yes (Hospitalization, Other)
  Sender: FDA-Public Use
  Company Number: US-ELI_LILLY_AND_COMPANY-US201202005909

PATIENT
  Sex: Male

DRUGS (5)
  1. CRESTOR [Concomitant]
     Dosage: UNK, UNKNOWN
  2. ASPIRIN [Concomitant]
     Dosage: UNK, UNKNOWN
  3. EFFIENT [Suspect]
     Indication: STENT PLACEMENT
     Dosage: 10 MG, UNKNOWN
     Dates: start: 20101117, end: 20120210
  4. EFFIENT [Suspect]
     Dosage: 5 MG, UNKNOWN
     Dates: start: 20120220
  5. COREG [Concomitant]
     Dosage: UNK, UNKNOWN

REACTIONS (3)
  - RECTAL HAEMORRHAGE [None]
  - INCORRECT STORAGE OF DRUG [None]
  - POLYP [None]
